FAERS Safety Report 20861733 (Version 1)
Quarter: 2022Q2

REPORT INFORMATION
  Report Type: Spontaneous
  Country: US (occurrence: US)
  Receive Date: 20220523
  Receipt Date: 20220523
  Transmission Date: 20220721
  Serious: No
  Sender: FDA-Public Use
  Company Number: US-PFIZER INC-202200727211

PATIENT
  Age: 66 Year
  Sex: Female

DRUGS (1)
  1. PAXLOVID [Suspect]
     Active Substance: NIRMATRELVIR\RITONAVIR
     Indication: COVID-19 treatment
     Dosage: UNK

REACTIONS (9)
  - Dysgeusia [Unknown]
  - Abdominal discomfort [Unknown]
  - Muscular weakness [Unknown]
  - Lethargy [Unknown]
  - Pyrexia [Unknown]
  - Fibromyalgia [Unknown]
  - Myalgia [Unknown]
  - Constipation [Unknown]
  - Off label use [Unknown]
